FAERS Safety Report 8344421-3 (Version None)
Quarter: 2012Q2

REPORT INFORMATION
  Report Type: 
  Country: None (occurrence: None)
  Receive Date: 20120508
  Receipt Date: 20120503
  Transmission Date: 20120825
  Serious: Yes (Hospitalization)
  Sender: FDA-Public Use
  Company Number: US-BAYER-201025545NA

PATIENT
  Age: 19 Year
  Sex: Female
  Weight: 59.41 kg

DRUGS (5)
  1. YASMIN [Suspect]
     Indication: CONTRACEPTION
     Dosage: 1 TAB/DAY
     Route: 048
     Dates: start: 20001001, end: 20060901
  2. YASMIN [Suspect]
     Dosage: 1 TAB/DAY
     Dates: start: 20050801, end: 20051119
  3. NAPROXEN [Concomitant]
     Dosage: UNK
     Dates: start: 20050801
  4. IBUPROFEN [Concomitant]
  5. ANTI-ASTHMATICS [Concomitant]

REACTIONS (5)
  - DYSPNOEA EXERTIONAL [None]
  - PLEURAL EFFUSION [None]
  - ATELECTASIS [None]
  - PULMONARY EMBOLISM [None]
  - PLEURITIC PAIN [None]
